FAERS Safety Report 5120398-9 (Version None)
Quarter: 2006Q4

REPORT INFORMATION
  Report Type: 
  Country: None (occurrence: None)
  Receive Date: 20061004
  Receipt Date: 20060929
  Transmission Date: 20070319
  Serious: Yes (Life-Threatening)
  Sender: FDA-Public Use
  Company Number: CO-GLAXOSMITHKLINE-A0622353A

PATIENT
  Age: 5 Year
  Sex: Female

DRUGS (2)
  1. LAMICTAL [Suspect]
     Route: 048
     Dates: start: 20060715
  2. VALPROIC ACID [Concomitant]
     Dosage: 40MG TWICE PER DAY

REACTIONS (2)
  - PRURITUS [None]
  - RASH [None]
